FAERS Safety Report 23300613 (Version 2)
Quarter: 2023Q4

REPORT INFORMATION
  Report Type: Spontaneous
  Country: GB (occurrence: GB)
  Receive Date: 20231215
  Receipt Date: 20231228
  Transmission Date: 20240109
  Serious: Yes (Other)
  Sender: FDA-Public Use
  Company Number: GB-BAXTER-2023BAX038212

PATIENT
  Sex: Female

DRUGS (3)
  1. SODIUM CHLORIDE [Suspect]
     Active Substance: SODIUM CHLORIDE
     Indication: Medication dilution
     Dosage: AT AN UNSPECIFIED DOSE 6 WEEKLY
     Route: 042
  2. WATER FOR INJECTION [Suspect]
     Active Substance: WATER
     Indication: Medication dilution
     Dosage: AT AN UNSPECIFIED DOSE 6 WEEKLY
     Route: 042
  3. INFLIXIMAB [Suspect]
     Active Substance: INFLIXIMAB
     Indication: Crohn^s disease
     Dosage: 290 MG 6 WEEKLY
     Route: 042

REACTIONS (3)
  - Lower respiratory tract infection [Unknown]
  - Blood test abnormal [Not Recovered/Not Resolved]
  - Urinary tract infection [Unknown]
